FAERS Safety Report 5684718-9 (Version None)
Quarter: 2008Q1

REPORT INFORMATION
  Report Type: 
  Country: None (occurrence: None)
  Receive Date: 20080328
  Receipt Date: 20070727
  Transmission Date: 20080703
  Serious: No
  Sender: FDA-Public Use
  Company Number: US-BRISTOL-MYERS SQUIBB COMPANY-13859889

PATIENT
  Sex: Female

DRUGS (1)
  1. CETUXIMAB [Suspect]
     Dates: start: 20070701

REACTIONS (5)
  - DYSPNOEA [None]
  - ERYTHEMA [None]
  - INFUSION RELATED REACTION [None]
  - PERIORBITAL OEDEMA [None]
  - PRURITUS [None]
